FAERS Safety Report 25818063 (Version 1)
Quarter: 2025Q3

REPORT INFORMATION
  Report Type: Spontaneous
  Country: JP (occurrence: JP)
  Receive Date: 20250918
  Receipt Date: 20250918
  Transmission Date: 20251021
  Serious: Yes (Other)
  Sender: MERCK SHARP & DOHME LLC
  Company Number: JP-009507513-2330229

PATIENT
  Sex: Female

DRUGS (3)
  1. KEYTRUDA [Suspect]
     Active Substance: PEMBROLIZUMAB
     Route: 041
  2. TC therapy [Concomitant]
  3. TC therapy [Concomitant]

REACTIONS (3)
  - Oral mucosal eruption [Recovering/Resolving]
  - Feeding disorder [Unknown]
  - Weight decreased [Unknown]
